FAERS Safety Report 6461071-4 (Version None)
Quarter: 2009Q4

REPORT INFORMATION
  Report Type: 
  Country: None (occurrence: None)
  Receive Date: 20091130
  Receipt Date: 20091119
  Transmission Date: 20100525
  Serious: Yes (Death, Life-Threatening, Hospitalization)
  Sender: FDA-Public Use
  Company Number: B0606105A

PATIENT
  Age: 1 Year
  Sex: Male

DRUGS (4)
  1. ZOPHREN [Suspect]
     Route: 042
     Dates: start: 20091019, end: 20091019
  2. CARBOPLATIN [Suspect]
     Indication: BRAIN NEOPLASM
     Route: 065
     Dates: start: 20091019, end: 20091019
  3. VINCRISTINE [Suspect]
     Indication: BRAIN NEOPLASM
     Route: 065
     Dates: start: 20091019, end: 20091019
  4. VOGALENE [Suspect]
     Route: 065
     Dates: start: 20091019, end: 20091019

REACTIONS (9)
  - AGITATION [None]
  - CARDIO-RESPIRATORY ARREST [None]
  - CYANOSIS [None]
  - DEATH [None]
  - DIARRHOEA [None]
  - DYSPNOEA [None]
  - MALAISE [None]
  - PALLOR [None]
  - SOMNOLENCE [None]
